FAERS Safety Report 19897610 (Version 1)
Quarter: 2021Q3

REPORT INFORMATION
  Report Type: Report from Study
  Country: IT (occurrence: IT)
  Receive Date: 20210930
  Receipt Date: 20210930
  Transmission Date: 20211014
  Serious: Yes (Other)
  Sender: FDA-Public Use
  Company Number: IT-SUN PHARMACEUTICAL INDUSTRIES LTD-2021RR-312973

PATIENT
  Age: 50 Year
  Sex: Female

DRUGS (4)
  1. BEVACIZUMAB. [Suspect]
     Active Substance: BEVACIZUMAB
     Indication: RENAL CANCER STAGE IV
     Dosage: 15 MILLIGRAM/KILOGRAM, UNK
  2. CISPLATIN. [Suspect]
     Active Substance: CISPLATIN
     Indication: RENAL CANCER STAGE IV
     Dosage: 25 MILLIGRAM/SQ. METER, UNK
     Route: 065
  3. CARBOPLATIN. [Suspect]
     Active Substance: CARBOPLATIN
     Indication: RENAL CANCER STAGE IV
     Dosage: 5 MG/ML/MIN EVERY 3 WEEKS
     Route: 065
  4. GEMCITABINE. [Suspect]
     Active Substance: GEMCITABINE
     Indication: RENAL CANCER STAGE IV
     Dosage: 1250 MILLIGRAM/SQ. METER ON DAYS 1 AND 8
     Route: 065
     Dates: start: 201502

REACTIONS (4)
  - Haematotoxicity [Unknown]
  - Therapeutic product effect incomplete [Unknown]
  - Malignant neoplasm progression [Unknown]
  - Febrile neutropenia [Unknown]
